FAERS Safety Report 7186329-5 (Version None)
Quarter: 2010Q4

REPORT INFORMATION
  Report Type: 
  Country: None (occurrence: None)
  Receive Date: 20101222
  Receipt Date: 20100618
  Transmission Date: 20110411
  Serious: No
  Sender: FDA-Public Use
  Company Number: US-AMGEN-KDL419291

PATIENT

DRUGS (5)
  1. ENBREL [Suspect]
     Indication: RHEUMATOID ARTHRITIS
     Dosage: 50 MG, QWK
     Route: 058
  2. ESTRADIOL [Concomitant]
     Dosage: .25 MG, UNK
  3. PROGESTERONE [Concomitant]
     Dosage: 50 MG, UNK
  4. MULTI-VITAMINS [Concomitant]
     Dosage: UNK UNK, UNK
  5. ASCORBIC ACID [Concomitant]
     Dosage: UNK UNK, UNK
     Route: 048

REACTIONS (4)
  - RASH [None]
  - RASH PRURITIC [None]
  - URINARY TRACT INFECTION [None]
  - URTICARIA [None]
